FAERS Safety Report 8914449 (Version 1)
Quarter: 2012Q4

REPORT INFORMATION
  Report Type: 
  Country: ES (occurrence: ES)
  Receive Date: 20121116
  Receipt Date: 20121116
  Transmission Date: 20130627
  Serious: Yes (Hospitalization)
  Sender: FDA-Public Use
  Company Number: ES-TEVA-368790ISR

PATIENT
  Age: 62 Year
  Sex: Male

DRUGS (2)
  1. TEMOZOLOMIDA [Suspect]
     Route: 048
  2. FORTECORTIN [Interacting]
     Indication: BRAIN OEDEMA
     Route: 048
     Dates: start: 20111111, end: 20111205

REACTIONS (2)
  - Hyperglycaemic hyperosmolar nonketotic syndrome [Recovered/Resolved]
  - Drug interaction [Recovered/Resolved]
